FAERS Safety Report 8556016-7 (Version None)
Quarter: 2012Q3

REPORT INFORMATION
  Report Type: 
  Country: None (occurrence: None)
  Receive Date: 20120801
  Receipt Date: 20120727
  Transmission Date: 20120928
  Serious: Yes (Other)
  Sender: FDA-Public Use
  Company Number: US-AMGEN-USASP2012047182

PATIENT
  Age: 81 Year
  Sex: Female

DRUGS (2)
  1. ENBREL [Suspect]
     Indication: RHEUMATOID ARTHRITIS
     Dosage: 50 MG, QWK
     Dates: start: 19980701
  2. METHOTREXATE [Concomitant]
     Dosage: UNK

REACTIONS (3)
  - HAND DEFORMITY [None]
  - AORTIC VALVE DISEASE [None]
  - TENDON DISORDER [None]
